FAERS Safety Report 16543445 (Version 1)
Quarter: 2019Q3

REPORT INFORMATION
  Report Type: Spontaneous
  Country: SE (occurrence: SE)
  Receive Date: 20190709
  Receipt Date: 20190709
  Transmission Date: 20191004
  Serious: Yes (Other)
  Sender: FDA-Public Use
  Company Number: SE-ACCORD-137661

PATIENT
  Age: 63 Year
  Sex: Male
  Weight: 91 kg

DRUGS (4)
  1. SELOKENZOC [Concomitant]
     Active Substance: METOPROLOL SUCCINATE
     Dates: start: 20150101
  2. ESCITALOPRAM [Suspect]
     Active Substance: ESCITALOPRAM OXALATE
     Indication: DEPRESSION
     Dates: start: 20190101
  3. TROMBYL [Concomitant]
     Active Substance: ASPIRIN
     Dates: start: 20150101
  4. PHENYLEPHRINE [Interacting]
     Active Substance: PHENYLEPHRINE HYDROCHLORIDE
     Indication: OPHTHALMOLOGICAL EXAMINATION
     Dosage: STRENGTH 2.5% ONE DROP PER EYE
     Dates: start: 20190617, end: 20190617

REACTIONS (5)
  - Discomfort [Recovered/Resolved]
  - Tremor [Recovered/Resolved]
  - Anxiety [Recovered/Resolved]
  - Drug interaction [Unknown]
  - Palpitations [Recovered/Resolved]

NARRATIVE: CASE EVENT DATE: 20190617
